FAERS Safety Report 23380362 (Version 2)
Quarter: 2024Q1

REPORT INFORMATION
  Report Type: Spontaneous
  Country: SE (occurrence: SE)
  Receive Date: 20240109
  Receipt Date: 20240110
  Transmission Date: 20240410
  Serious: Yes (Other)
  Sender: FDA-Public Use
  Company Number: None

PATIENT
  Age: 63 Year
  Sex: Female

DRUGS (17)
  1. VENETOCLAX [Suspect]
     Active Substance: VENETOCLAX
     Indication: Chronic lymphocytic leukaemia
     Dosage: 2X1
     Route: 048
     Dates: start: 20221107, end: 20221114
  2. ALBUTEROL SULFATE [Concomitant]
     Active Substance: ALBUTEROL SULFATE
     Indication: Product used for unknown indication
     Dosage: TIME INTERVAL: 1 AS NECESSARY: 1 WHEN NEEDED UNTIL FURTHER NOTICE
     Route: 065
     Dates: start: 20200429
  3. SERETIDE [Concomitant]
     Active Substance: FLUTICASONE PROPIONATE\SALMETEROL XINAFOATE
     Indication: Product used for unknown indication
     Dosage: 1-2X2,FORTE
     Route: 065
     Dates: start: 20190326, end: 20230309
  4. ESTRIOL [Concomitant]
     Active Substance: ESTRIOL
     Indication: Product used for unknown indication
     Dosage: ONE 10 PM IN ONE DOSE
     Route: 065
     Dates: start: 20221010
  5. ESTRIOL [Concomitant]
     Active Substance: ESTRIOL
     Indication: Product used for unknown indication
     Dosage: ACCORDING TO SCHEDULE
     Route: 065
  6. CETIRIZIN STADA [Concomitant]
     Indication: Product used for unknown indication
     Dosage: TIME INTERVAL: 1 AS NECESSARY: 1 TABLET WHEN NEEDED MAX 1/D
     Route: 065
     Dates: start: 20190326
  7. RILTOZINAMERAN\TOZINAMERAN [Concomitant]
     Active Substance: RILTOZINAMERAN\TOZINAMERAN
     Indication: Product used for unknown indication
     Route: 065
     Dates: start: 20221005, end: 20221130
  8. ALLOPURINOL [Concomitant]
     Active Substance: ALLOPURINOL
     Indication: Product used for unknown indication
     Dosage: 1X1 UNTIL FURTHER NOTICE
     Route: 065
     Dates: start: 20221027, end: 20230103
  9. AMLODIPINE BESYLATE [Concomitant]
     Active Substance: AMLODIPINE BESYLATE
     Indication: Product used for unknown indication
     Dosage: 1 UNTIL FURTHER NOTICE
     Route: 065
     Dates: start: 20221108, end: 20230214
  10. NASONEX [Concomitant]
     Active Substance: MOMETASONE FUROATE
     Indication: Product used for unknown indication
     Dosage: 2X2
     Route: 065
     Dates: start: 20181221
  11. PREDNISOLONE [Concomitant]
     Active Substance: PREDNISOLONE
     Indication: Product used for unknown indication
     Dosage: 1 TABLET 8 AM FOR ONE WEEK, TABLETS AND OTHER, LAST ADMIN DATE-11-2022
     Route: 065
     Dates: start: 20221111
  12. PREDNISOLONE [Concomitant]
     Active Substance: PREDNISOLONE
     Indication: Product used for unknown indication
     Dosage: 0.5 TABLET 8 AM FOR ONE WEEK, FIRST AND LAST ADMIN DATE-11-2022
     Route: 065
  13. PREDNISOLONE [Concomitant]
     Active Substance: PREDNISOLONE
     Indication: Product used for unknown indication
     Dosage: 2 TABLETS 8 AM FOR ONE WEEK, FIRST AND LAST ADMIN DATE-11-2022
     Route: 065
  14. PREDNISOLONE [Concomitant]
     Active Substance: PREDNISOLONE
     Indication: Product used for unknown indication
     Dosage: 1.5 TABLETS 8 AM FOR ONE WEEK, FIRST ADMIN DATE-11-2022
     Route: 065
     Dates: end: 20221124
  15. NORFLEX [Concomitant]
     Active Substance: ORPHENADRINE CITRATE
     Indication: Product used for unknown indication
     Dosage: TIME INTERVAL: 1 AS NECESSARY: 1 WHEN NEEDED UNTIL FURTHER NOTICE
     Route: 065
     Dates: start: 20200109
  16. ACETAMINOPHEN [Concomitant]
     Active Substance: ACETAMINOPHEN
     Indication: Product used for unknown indication
     Dosage: TIME INTERVAL: 1 AS NECESSARY: 1 TABLET WHEN NEEDED MAX 3/D UNTIL FURTHER NOTICE, FORTE
     Route: 065
     Dates: start: 20200109
  17. OMEPRAZOLE [Concomitant]
     Active Substance: OMEPRAZOLE
     Indication: Product used for unknown indication
     Dosage: 1X1 UNTIL FURTHER NOTICE
     Route: 065
     Dates: start: 20221027

REACTIONS (2)
  - Polymyalgia rheumatica [Not Recovered/Not Resolved]
  - Hypertension [Not Recovered/Not Resolved]

NARRATIVE: CASE EVENT DATE: 20221114
